FAERS Safety Report 6625894-0 (Version None)
Quarter: 2010Q1

REPORT INFORMATION
  Report Type: 
  Country: None (occurrence: None)
  Receive Date: 20100310
  Receipt Date: 20100302
  Transmission Date: 20100710
  Serious: Yes (Hospitalization)
  Sender: FDA-Public Use
  Company Number: GXKR2010JP01706

PATIENT
  Sex: Female
  Weight: 45 kg

DRUGS (6)
  1. CARBOPLATIN SANDOZ (NGX) [Suspect]
     Indication: OVARIAN CANCER RECURRENT
     Dosage: 225 MG/DAY
     Dates: start: 20100205, end: 20100205
  2. DOCETAXEL [Concomitant]
     Dosage: 100 MG/DAY
     Route: 041
     Dates: start: 20100205
  3. DEXAMETHASONE [Concomitant]
     Dosage: 16.5 MG/DAY
     Route: 065
     Dates: start: 20100205
  4. GRANISETRON [Concomitant]
     Dosage: 3 MG/DAY
     Route: 065
     Dates: start: 20100205
  5. SOLU-CORTEF [Concomitant]
     Dosage: 100 MG/DAY
     Dates: start: 20100205
  6. LASIX [Concomitant]
     Dosage: 10 MG/DAY
     Dates: start: 20100205

REACTIONS (7)
  - DYSPHORIA [None]
  - ERYTHEMA [None]
  - NEUTROPHIL COUNT DECREASED [None]
  - OROPHARYNGEAL DISCOMFORT [None]
  - SHOCK [None]
  - URINE OUTPUT DECREASED [None]
  - WHITE BLOOD CELL COUNT DECREASED [None]
